FAERS Safety Report 23574502 (Version 2)
Quarter: 2024Q2

REPORT INFORMATION
  Report Type: Spontaneous
  Country: DE (occurrence: DE)
  Receive Date: 20240228
  Receipt Date: 20240503
  Transmission Date: 20240715
  Serious: Yes (Life-Threatening, Hospitalization, Disabling, Other)
  Sender: FDA-Public Use
  Company Number: DE-PEI-202400003314

PATIENT
  Age: 67 Year
  Sex: Female
  Weight: 74 kg

DRUGS (3)
  1. IDECABTAGENE VICLEUCEL [Suspect]
     Active Substance: IDECABTAGENE VICLEUCEL
     Indication: Plasma cell myeloma
     Dates: start: 20221212
  2. CYCLOPHOSPHAMIDE [Concomitant]
     Active Substance: CYCLOPHOSPHAMIDE
     Indication: Plasma cell myeloma
     Route: 042
     Dates: start: 20221207, end: 20221209
  3. FLUDARABINE PHOSPHATE [Concomitant]
     Active Substance: FLUDARABINE PHOSPHATE
     Indication: Plasma cell myeloma
     Route: 042
     Dates: start: 20221207, end: 20221209

REACTIONS (4)
  - Compartment syndrome [Unknown]
  - Malignant neoplasm progression [Unknown]
  - Tumour pseudoprogression [Unknown]
  - Haematotoxicity [Unknown]

NARRATIVE: CASE EVENT DATE: 20221216
